FAERS Safety Report 25924803 (Version 1)
Quarter: 2025Q4

REPORT INFORMATION
  Report Type: Spontaneous
  Country: US (occurrence: None)
  Receive Date: 20251013
  Receipt Date: 20251013
  Transmission Date: 20260118
  Serious: Yes (Disabling, Other)
  Sender: FDA-CTU
  Company Number: None

PATIENT
  Age: 31 Year
  Sex: Male
  Weight: 74.25 kg

DRUGS (1)
  1. FLUOXETINE [Suspect]
     Active Substance: FLUOXETINE HYDROCHLORIDE

REACTIONS (12)
  - Impaired quality of life [None]
  - Brain fog [None]
  - Apathy [None]
  - Sexual dysfunction [None]
  - Loss of libido [None]
  - Emotional poverty [None]
  - Panic disorder [None]
  - Anger [None]
  - Cognitive disorder [None]
  - Pain [None]
  - Hormone level abnormal [None]
  - Sleep disorder [None]

NARRATIVE: CASE EVENT DATE: 20221001
